FAERS Safety Report 9287244 (Version 2)
Quarter: 2013Q2

REPORT INFORMATION
  Report Type: Spontaneous
  Country: US (occurrence: US)
  Receive Date: 20130513
  Receipt Date: 20130603
  Transmission Date: 20140414
  Serious: Yes (Life-Threatening, Hospitalization)
  Sender: FDA-Public Use
  Company Number: US-B.I. PHARMACEUTICALS,INC./RIDGEFIELD-2013-BI-12624BP

PATIENT
  Age: 87 Year
  Sex: Female
  Weight: 98.4 kg

DRUGS (8)
  1. PRADAXA [Suspect]
     Indication: CEREBROVASCULAR ACCIDENT PROPHYLAXIS
     Dosage: 150 MG
     Route: 048
     Dates: start: 2012, end: 20130423
  2. PRADAXA [Suspect]
     Indication: ATRIAL FIBRILLATION
  3. PRADAXA [Suspect]
     Indication: CORONARY ARTERY DISEASE
  4. LOSARTAN [Concomitant]
  5. FUROSEMIDE [Concomitant]
     Indication: CARDIAC FAILURE CONGESTIVE
  6. CARVEDILOL [Concomitant]
     Indication: CARDIAC FAILURE CONGESTIVE
  7. ROSUVASTATIN [Concomitant]
     Indication: HYPERLIPIDAEMIA
  8. DABIGATRAN [Concomitant]
     Indication: ATRIAL FIBRILLATION

REACTIONS (4)
  - Gastrointestinal haemorrhage [Not Recovered/Not Resolved]
  - Intestinal perforation [Not Recovered/Not Resolved]
  - Sepsis [Not Recovered/Not Resolved]
  - Renal impairment [Not Recovered/Not Resolved]
